FAERS Safety Report 10235357 (Version 1)
Quarter: 2014Q2

REPORT INFORMATION
  Report Type: Spontaneous
  Country: US (occurrence: US)
  Receive Date: 20140613
  Receipt Date: 20140613
  Transmission Date: 20141212
  Serious: No
  Sender: FDA-Public Use
  Company Number: US-PFIZER INC-2014161574

PATIENT
  Sex: Female

DRUGS (2)
  1. GABAPENTIN [Suspect]
     Indication: HERPES ZOSTER
     Dosage: UNK,2X/DAY
     Dates: start: 201404
  2. GABAPENTIN [Suspect]
     Dosage: UNK,DAILY
     Dates: start: 201405, end: 20140607

REACTIONS (3)
  - Nausea [Unknown]
  - Asthenia [Unknown]
  - Influenza like illness [Unknown]
